FAERS Safety Report 6501831-4 (Version None)
Quarter: 2009Q4

REPORT INFORMATION
  Report Type: 
  Country: None (occurrence: None)
  Receive Date: 20091216
  Receipt Date: 20091207
  Transmission Date: 20100525
  Serious: Yes (Other)
  Sender: FDA-Public Use
  Company Number: US-JNJCH-2009031837

PATIENT
  Age: 63 Year
  Sex: Male
  Weight: 81.6 kg

DRUGS (4)
  1. ROGAINE [Suspect]
     Indication: ALOPECIA
     Dosage: TEXT:LESS THAN 1/2 CAPFUL 2 X DAILY
     Route: 061
  2. TRIAMTERENE AND HYDROCHLOROTHIAZIDE [Concomitant]
     Indication: HYPERTENSION
     Dosage: DAILY DOSE:75MG-TEXT:75 MG
     Route: 065
  3. LABETALOL HCL [Concomitant]
     Indication: HYPERTENSION
     Dosage: TEXT:8CL 100MG
     Route: 065
  4. ALL OTHER THERAPEUTIC PRODUCTS [Concomitant]
     Indication: ABDOMINAL DISCOMFORT
     Dosage: DAILY DOSE:20MG-TEXT:20MG 1 X DAILY
     Route: 065

REACTIONS (3)
  - BLOOD PRESSURE INCREASED [None]
  - HEART RATE INCREASED [None]
  - INCORRECT DOSE ADMINISTERED [None]
